FAERS Safety Report 23474858 (Version 1)
Quarter: 2024Q1

REPORT INFORMATION
  Report Type: Report from Study
  Country: CA (occurrence: CA)
  Receive Date: 20240204
  Receipt Date: 20240204
  Transmission Date: 20240409
  Serious: Yes (Death, Other)
  Sender: FDA-Public Use
  Company Number: CA-IPSEN Group, Research and Development-2023-19747

PATIENT
  Age: 54 Year
  Sex: Male

DRUGS (5)
  1. CABOMETYX [Suspect]
     Active Substance: CABOZANTINIB S-MALATE
     Indication: Renal cell carcinoma
     Dosage: 40MG OD
     Route: 048
     Dates: start: 20220902
  2. FRAGMIN [Concomitant]
     Active Substance: DALTEPARIN SODIUM
  3. STOMACH PILLS [Concomitant]
     Dosage: AS NEEDED
  4. STOMACH PILLS [Concomitant]
     Dosage: AS NEEDED
  5. HYDROMORPHONE [Concomitant]
     Active Substance: HYDROMORPHONE

REACTIONS (1)
  - Malignant neoplasm progression [Fatal]

NARRATIVE: CASE EVENT DATE: 20230503
